FAERS Safety Report 21498084 (Version 1)
Quarter: 2022Q4

REPORT INFORMATION
  Report Type: Spontaneous
  Country: CN (occurrence: CN)
  Receive Date: 20221024
  Receipt Date: 20221024
  Transmission Date: 20230113
  Serious: Yes (Other)
  Sender: FDA-Public Use
  Company Number: None

PATIENT
  Age: 68 Year
  Sex: Female
  Weight: 56 kg

DRUGS (7)
  1. CYCLOPHOSPHAMIDE [Suspect]
     Active Substance: CYCLOPHOSPHAMIDE
     Indication: Breast cancer female
     Dosage: 750 MG ONCE DAILY, POWDER INJECTION DILUTED WITH  40 ML OF NS
     Route: 042
     Dates: start: 20220803, end: 20220803
  2. CYCLOPHOSPHAMIDE [Suspect]
     Active Substance: CYCLOPHOSPHAMIDE
     Indication: Chemotherapy
  3. SODIUM CHLORIDE [Suspect]
     Active Substance: SODIUM CHLORIDE
     Indication: Medication dilution
     Dosage: 40 ML ONCE A DAY USED TO DILUTE 750 MG CYCLOPHOSPHAMIDE
     Route: 042
     Dates: start: 20220803, end: 20220803
  4. SODIUM CHLORIDE [Suspect]
     Active Substance: SODIUM CHLORIDE
     Dosage: 100 ML ONCE DAY USED TO DILUTE 120 MG EPIRUBICIN HYDROCHLORIDE
     Route: 041
     Dates: start: 20220803, end: 20220803
  5. EPIRUBICIN HYDROCHLORIDE [Suspect]
     Active Substance: EPIRUBICIN HYDROCHLORIDE
     Indication: Breast cancer female
     Dosage: 120 MG ONCE DAILY DILUTED WITH NS 100 ML
     Route: 041
     Dates: start: 20220803, end: 20220803
  6. EPIRUBICIN HYDROCHLORIDE [Suspect]
     Active Substance: EPIRUBICIN HYDROCHLORIDE
     Indication: Chemotherapy
  7. AI DUO [Concomitant]
     Indication: Product used for unknown indication
     Dosage: 6 MG
     Dates: start: 20220805

REACTIONS (2)
  - White blood cell count decreased [Recovered/Resolved]
  - Agranulocytosis [Recovered/Resolved]

NARRATIVE: CASE EVENT DATE: 20220810
